FAERS Safety Report 11833513 (Version 1)
Quarter: 2015Q4

REPORT INFORMATION
  Report Type: Spontaneous
  Country: US (occurrence: US)
  Receive Date: 20151214
  Receipt Date: 20151214
  Transmission Date: 20160305
  Serious: No
  Sender: FDA-Public Use
  Company Number: US-PERRIGO-15US009263

PATIENT
  Age: 66 Year
  Sex: Female

DRUGS (1)
  1. MINOXIDIL. [Suspect]
     Active Substance: MINOXIDIL
     Indication: HAIR INJURY
     Dosage: 1 ML OR MORE, THREE TIMES WEEKLY
     Route: 061
     Dates: start: 20150505

REACTIONS (3)
  - Pain in extremity [Unknown]
  - Application site irritation [Recovered/Resolved]
  - Off label use [Not Recovered/Not Resolved]

NARRATIVE: CASE EVENT DATE: 20150505
